FAERS Safety Report 8734308 (Version 1)
Quarter: 2012Q4

REPORT INFORMATION
  Report Type: 
  Country: US (occurrence: US)
  Receive Date: 20120830
  Receipt Date: 20120830
  Transmission Date: 20130627
  Serious: No
  Sender: FDA-Public Use
  Company Number: US-ASTRAZENECA-2012SE55703

PATIENT
  Age: 42 Year
  Sex: Male

DRUGS (2)
  1. CRESTOR [Suspect]
     Route: 048
  2. ULORIC [Suspect]
     Indication: GOUT
     Route: 048

REACTIONS (4)
  - Rash [Unknown]
  - Asthenia [Unknown]
  - Fluid retention [Unknown]
  - Fatigue [Unknown]
